FAERS Safety Report 9748248 (Version 1)
Quarter: 2013Q4

REPORT INFORMATION
  Report Type: Spontaneous
  Country: US (occurrence: None)
  Receive Date: 20131206
  Receipt Date: 20131206
  Transmission Date: 20140711
  Serious: Yes (Hospitalization)
  Sender: FDA-Public Use
  Company Number: IPC201311-000496

PATIENT
  Age: 34 Year
  Sex: Male

DRUGS (2)
  1. PROPRANOLOL HYDROCHLORIDE (PROPRANOLOL HYDROCHLORIDE) (PROPANOLOL HYDROCHLORIDE) [Suspect]
  2. DOXAZOCIN (DOXAZOCIN) (DOXAZOCIN) [Suspect]

REACTIONS (6)
  - Lethargy [None]
  - Bradycardia [None]
  - Shock [None]
  - Renal failure [None]
  - Circulatory collapse [None]
  - Exposure via ingestion [None]
